FAERS Safety Report 7002549-4 (Version None)
Quarter: 2010Q3

REPORT INFORMATION
  Report Type: 
  Country: None (occurrence: None)
  Receive Date: 20100920
  Receipt Date: 20090928
  Transmission Date: 20110219
  Serious: No
  Sender: FDA-Public Use
  Company Number: US-ASTRAZENECA-2009SE16179

PATIENT
  Sex: Male

DRUGS (4)
  1. SEROQUEL XR [Suspect]
     Indication: BIPOLAR DISORDER
     Route: 048
  2. SEROQUEL XR [Suspect]
     Indication: SLEEP DISORDER
     Route: 048
  3. SEROQUEL XR [Suspect]
     Route: 048
     Dates: start: 20090922
  4. SEROQUEL XR [Suspect]
     Route: 048
     Dates: start: 20090922

REACTIONS (3)
  - INSOMNIA [None]
  - NERVOUSNESS [None]
  - PANIC ATTACK [None]
